FAERS Safety Report 24715103 (Version 1)
Quarter: 2024Q4

REPORT INFORMATION
  Report Type: Spontaneous
  Country: US (occurrence: US)
  Receive Date: 20241210
  Receipt Date: 20241210
  Transmission Date: 20250114
  Serious: No
  Sender: AUROBINDO
  Company Number: US-AUROBINDO-AUR-APL-2024-047926

PATIENT
  Age: 5 Year
  Sex: Female

DRUGS (1)
  1. SERTRALINE [Suspect]
     Active Substance: SERTRALINE HYDROCHLORIDE
     Indication: Product used for unknown indication
     Dosage: 0.5 MILLILITER, ONCE A DAY
     Route: 048

REACTIONS (2)
  - Product dose omission issue [Unknown]
  - Product taste abnormal [Unknown]
